FAERS Safety Report 9104277 (Version 2)
Quarter: 2013Q1

REPORT INFORMATION
  Report Type: Spontaneous
  Country: GB (occurrence: GB)
  Receive Date: 20130220
  Receipt Date: 20130220
  Transmission Date: 20140127
  Serious: Yes (Death)
  Sender: FDA-Public Use
  Company Number: GB-BAYER-2013-020160

PATIENT
  Age: 82 Year
  Sex: 0
  Weight: 51 kg

DRUGS (7)
  1. ACETYLSALICYLIC ACID [Suspect]
     Indication: CARDIAC DISORDER
     Dosage: UNK
     Dates: start: 20121101, end: 201211
  2. CLEXANE [Suspect]
     Indication: CARDIAC DISORDER
     Dosage: UNK
     Dates: start: 20121101, end: 201211
  3. CLOPIDOGREL [Suspect]
     Indication: CARDIAC DISORDER
     Dosage: UNK
     Dates: start: 20121101, end: 201211
  4. CANDESARTAN [Concomitant]
  5. FLUOXETINE [Concomitant]
  6. INHALERS [Concomitant]
  7. INSULIN [Concomitant]

REACTIONS (1)
  - Retroperitoneal haemorrhage [Fatal]
